FAERS Safety Report 9501862 (Version 2)
Quarter: 2013Q3

REPORT INFORMATION
  Report Type: Report from Study
  Country: JP (occurrence: JP)
  Receive Date: 20130905
  Receipt Date: 20130911
  Transmission Date: 20140515
  Serious: Yes (Hospitalization)
  Sender: FDA-Public Use
  Company Number: JP-CELGENEUS-087-FK228-13083576

PATIENT
  Age: 69 Year
  Sex: Male
  Weight: 66.8 kg

DRUGS (14)
  1. ROMIDEPSIN [Suspect]
     Indication: PERIPHERAL T-CELL LYMPHOMA UNSPECIFIED
     Dosage: 24.2 MILLIGRAM
     Route: 041
     Dates: start: 20130730
  2. ROMIDEPSIN [Suspect]
     Indication: MYCOSIS FUNGOIDES
  3. LANSOPRAZOLE [Concomitant]
     Indication: GASTROINTESTINAL DISORDER
     Dosage: 15 MILLIGRAM
     Route: 048
     Dates: start: 20130729
  4. LOXONIN [Concomitant]
     Indication: CANCER PAIN
     Dosage: 540 MILLIGRAM
     Route: 048
     Dates: start: 20130805
  5. OXINORM [Concomitant]
     Indication: CANCER PAIN
     Route: 048
     Dates: start: 20130731
  6. OXINORM [Concomitant]
     Dosage: 10 MILLIGRAM
     Route: 065
     Dates: start: 20130812
  7. FENTOS TAPE [Concomitant]
     Indication: CANCER PAIN
     Dosage: 1 MILLIGRAM
     Route: 048
     Dates: start: 20130821
  8. NOVAMIN [Concomitant]
     Indication: NAUSEA
     Route: 048
     Dates: start: 20130731
  9. NOVAMIN [Concomitant]
     Indication: NAUSEA
  10. PLATELET [Concomitant]
     Indication: PRODUCT USED FOR UNKNOWN INDICATION
     Route: 041
     Dates: start: 20130813
  11. FELBINAC [Concomitant]
     Indication: CANCER PAIN
     Route: 062
     Dates: start: 20130803
  12. MAGLAX [Concomitant]
     Indication: CONSTIPATION
     Dosage: 1000 MILLIGRAM
     Route: 048
     Dates: start: 20130805, end: 20130825
  13. LAXOBERON [Concomitant]
     Indication: CONSTIPATION
     Route: 065
     Dates: start: 20130806
  14. NEO-MINOPHAGEN C [Concomitant]
     Indication: PYREXIA
     Route: 065
     Dates: start: 20130826

REACTIONS (1)
  - Pain [Not Recovered/Not Resolved]
